FAERS Safety Report 8179126-5 (Version None)
Quarter: 2012Q1

REPORT INFORMATION
  Report Type: 
  Country: None (occurrence: None)
  Receive Date: 20120227
  Receipt Date: 20120215
  Transmission Date: 20120608
  Serious: Yes (Other)
  Sender: FDA-Public Use
  Company Number: 1000028513

PATIENT
  Sex: Female

DRUGS (1)
  1. LEXAPRO [Suspect]
     Dosage: 10 MG (10 MG, 1 IN 1 D), ORAL
     Route: 048
     Dates: start: 20111111, end: 20120203

REACTIONS (5)
  - WEIGHT INCREASED [None]
  - MEMORY IMPAIRMENT [None]
  - INTENTIONAL SELF-INJURY [None]
  - DIZZINESS [None]
  - AMENORRHOEA [None]
